FAERS Safety Report 21314494 (Version 2)
Quarter: 2022Q4

REPORT INFORMATION
  Report Type: Spontaneous
  Country: US (occurrence: US)
  Receive Date: 20220909
  Receipt Date: 20221005
  Transmission Date: 20230112
  Serious: Yes (Other)
  Sender: FDA-Public Use
  Company Number: US-PFIZER INC-202201135343

PATIENT
  Age: 53 Year
  Sex: Female
  Weight: 102 kg

DRUGS (5)
  1. PREMARIN [Suspect]
     Active Substance: ESTROGENS, CONJUGATED
     Indication: Menopausal symptoms
     Dosage: 0.625 MG
     Route: 048
     Dates: start: 20200319
  2. PREMARIN [Suspect]
     Active Substance: ESTROGENS, CONJUGATED
     Indication: Hormone level abnormal
     Dosage: 0.9 MG
     Route: 048
     Dates: start: 20200319, end: 20220829
  3. TIROSINT [Concomitant]
     Active Substance: LEVOTHYROXINE SODIUM
     Indication: Hypothyroidism
     Dosage: UNK
  4. DITROPAN [Concomitant]
     Active Substance: OXYBUTYNIN CHLORIDE
     Indication: Hypertonic bladder
     Dosage: UNK
  5. PREVACID [Concomitant]
     Active Substance: LANSOPRAZOLE
     Indication: Gastrooesophageal reflux disease
     Dosage: UNK
     Dates: start: 20220202

REACTIONS (11)
  - Hypertension [Recovering/Resolving]
  - Fatigue [Unknown]
  - Asthenia [Unknown]
  - Hyperhidrosis [Recovered/Resolved]
  - Peripheral swelling [Unknown]
  - Fluid retention [Unknown]
  - Weight increased [Recovered/Resolved]
  - Feeling abnormal [Unknown]
  - Muscular weakness [Unknown]
  - Dysstasia [Unknown]
  - Somnolence [Unknown]
